FAERS Safety Report 16440234 (Version 1)
Quarter: 2019Q2

REPORT INFORMATION
  Report Type: Spontaneous
  Country: US (occurrence: US)
  Receive Date: 20190508
  Receipt Date: 20190508
  Transmission Date: 20190711
  Serious: No
  Sender: FDA-Public Use
  Company Number: None

PATIENT
  Age: 23 Year
  Sex: Female

DRUGS (1)
  1. HUMIRA [Suspect]
     Active Substance: ADALIMUMAB
     Indication: COLITIS ULCERATIVE
     Dosage: 160MG DAY 1, THEN 80MG DAY; EVERY 2 WEEKS; SUBCUTANEOUSLY
     Route: 058
     Dates: start: 20190502

REACTIONS (4)
  - Device use issue [None]
  - Accidental exposure to product [None]
  - Wrong technique in device usage process [None]
  - Syringe issue [None]

NARRATIVE: CASE EVENT DATE: 20190501
